FAERS Safety Report 6125901-8 (Version None)
Quarter: 2009Q1

REPORT INFORMATION
  Report Type: 
  Country: None (occurrence: None)
  Receive Date: 20090320
  Receipt Date: 20090318
  Transmission Date: 20090719
  Serious: Yes (Hospitalization)
  Sender: FDA-Public Use
  Company Number: US-BRISTOL-MYERS SQUIBB COMPANY-14539449

PATIENT
  Age: 81 Year
  Sex: Male
  Weight: 77 kg

DRUGS (6)
  1. COUMADIN [Suspect]
     Indication: HEART VALVE REPLACEMENT
     Dates: start: 20060101
  2. TOPROL-XL [Concomitant]
  3. AVAPRO [Concomitant]
  4. NORVASC [Concomitant]
  5. CALCIUM [Concomitant]
  6. ASPIRIN [Concomitant]

REACTIONS (2)
  - HAEMORRHAGE URINARY TRACT [None]
  - URINARY TRACT INFECTION [None]
